FAERS Safety Report 14807563 (Version 2)
Quarter: 2018Q2

REPORT INFORMATION
  Report Type: Spontaneous
  Country: US (occurrence: US)
  Receive Date: 20180425
  Receipt Date: 20180615
  Transmission Date: 20180711
  Serious: Yes (Hospitalization, Other)
  Sender: FDA-Public Use
  Company Number: US-GLAXOSMITHKLINE-US2018070929

PATIENT
  Sex: Male

DRUGS (13)
  1. ASTRAGALUS [Concomitant]
  2. ATENOLOL. [Concomitant]
     Active Substance: ATENOLOL
  3. ATORVASTATIN [Concomitant]
     Active Substance: ATORVASTATIN
  4. SYNTHROID [Concomitant]
     Active Substance: LEVOTHYROXINE SODIUM
  5. ADVAIR DISKUS [Suspect]
     Active Substance: FLUTICASONE PROPIONATE\SALMETEROL XINAFOATE
     Indication: ASTHMA
     Dosage: 1 PUFF(S), BID
     Route: 055
     Dates: end: 201705
  6. MAGNESIUM [Concomitant]
     Active Substance: MAGNESIUM
  7. COQ10 [Concomitant]
     Active Substance: UBIDECARENONE
  8. BREO ELLIPTA [Suspect]
     Active Substance: FLUTICASONE FUROATE\VILANTEROL TRIFENATATE
     Indication: ASTHMA
     Dosage: 1 PUFF(S), 1D
     Route: 055
     Dates: start: 201705
  9. AMBIEN [Concomitant]
     Active Substance: ZOLPIDEM TARTRATE
  10. PROAIR HFA [Concomitant]
     Active Substance: ALBUTEROL SULFATE
  11. ASPIRIN (BABY) [Concomitant]
     Active Substance: ASPIRIN
  12. WARFIN [Concomitant]
     Active Substance: WARFARIN
  13. NITROGLYCERIN. [Concomitant]
     Active Substance: NITROGLYCERIN

REACTIONS (10)
  - Dyskinesia [Not Recovered/Not Resolved]
  - Parkinsonism [Not Recovered/Not Resolved]
  - Constipation [Not Recovered/Not Resolved]
  - Hospitalisation [Unknown]
  - Dysphagia [Not Recovered/Not Resolved]
  - Dysphonia [Not Recovered/Not Resolved]
  - Tremor [Not Recovered/Not Resolved]
  - Musculoskeletal discomfort [Not Recovered/Not Resolved]
  - Cough [Not Recovered/Not Resolved]
  - Throat irritation [Unknown]

NARRATIVE: CASE EVENT DATE: 2016
